FAERS Safety Report 14540322 (Version 2)
Quarter: 2019Q1

REPORT INFORMATION
  Report Type: Spontaneous
  Country: FI (occurrence: FI)
  Receive Date: 20180216
  Receipt Date: 20190225
  Transmission Date: 20190417
  Serious: Yes (Other)
  Sender: FDA-Public Use
  Company Number: FI-SA-2018SA033884

PATIENT

DRUGS (1)
  1. AUBAGIO [Suspect]
     Active Substance: TERIFLUNOMIDE
     Dosage: 14 MG,UNK
     Route: 048

REACTIONS (26)
  - Blood pressure fluctuation [Unknown]
  - Diarrhoea [Unknown]
  - Abdominal pain [Unknown]
  - Lymphocyte count decreased [Unknown]
  - Abdominal discomfort [Unknown]
  - Infection [Unknown]
  - Lichen planus [Unknown]
  - Fatigue [Unknown]
  - Swelling [Unknown]
  - Flatulence [Unknown]
  - Blood pressure increased [Unknown]
  - Dry skin [Unknown]
  - Unevaluable event [Unknown]
  - Off label use [Unknown]
  - Blood pressure decreased [Unknown]
  - Respiratory tract infection [Unknown]
  - Dyspepsia [Unknown]
  - Hypersensitivity [Unknown]
  - Micturition urgency [Unknown]
  - Alanine aminotransferase increased [Unknown]
  - Headache [Unknown]
  - Alopecia [Unknown]
  - Dizziness [Unknown]
  - Oral herpes [Unknown]
  - Pain in extremity [Unknown]
  - Bone pain [Unknown]
